FAERS Safety Report 5634909-8 (Version None)
Quarter: 2008Q1

REPORT INFORMATION
  Report Type: 
  Country: None (occurrence: None)
  Receive Date: 20080221
  Receipt Date: 20080221
  Transmission Date: 20080703
  Serious: Yes (Other)
  Sender: FDA-Public Use
  Company Number: None

PATIENT
  Age: 71 Year
  Sex: Female
  Weight: 83.0083 kg

DRUGS (3)
  1. FENTANYL-100 [Suspect]
     Indication: FIBROMYALGIA
     Dosage: 100 MCG EVERY 3 DAYS APPLIED TO SKIN
     Route: 061
     Dates: start: 20060601
  2. FENTANYL-100 [Suspect]
     Indication: INTERVERTEBRAL DISC DEGENERATION
     Dosage: 100 MCG EVERY 3 DAYS APPLIED TO SKIN
     Route: 061
     Dates: start: 20060601
  3. FENTANYL-100 [Suspect]
     Indication: SPINAL DISORDER
     Dosage: 100 MCG EVERY 3 DAYS APPLIED TO SKIN
     Route: 061
     Dates: start: 20060601

REACTIONS (3)
  - HEADACHE [None]
  - NAUSEA [None]
  - VOMITING [None]
